FAERS Safety Report 6654591-0 (Version None)
Quarter: 2010Q1

REPORT INFORMATION
  Report Type: 
  Country: None (occurrence: None)
  Receive Date: 20100326
  Receipt Date: 20100317
  Transmission Date: 20100710
  Serious: Yes (Other)
  Sender: FDA-Public Use
  Company Number: TH-B.I. PHARMACEUTICALS,INC./RIDGEFIELD-2010-BP-02526BP

PATIENT
  Sex: Female
  Weight: 3.48 kg

DRUGS (7)
  1. VIRAMUNE [Suspect]
     Indication: HIV INFECTION
     Dosage: 200 MG
     Route: 064
     Dates: start: 20070413, end: 20070413
  2. LOPINAVIR AND RITONAVIR [Suspect]
     Indication: HIV INFECTION
     Route: 064
     Dates: start: 20070413, end: 20070413
  3. DIDANOSINE [Suspect]
     Indication: HIV INFECTION
     Dosage: 400 MG
     Route: 064
     Dates: start: 20070413, end: 20070413
  4. ZIDOVUDINE [Suspect]
     Indication: HIV INFECTION
     Route: 064
     Dates: start: 20070413, end: 20070413
  5. VITAMIN K TAB [Concomitant]
     Route: 030
  6. AZT [Concomitant]
     Dosage: 8 ML
     Route: 048
  7. AZT [Concomitant]

REACTIONS (10)
  - AGITATION NEONATAL [None]
  - ANAEMIA NEONATAL [None]
  - CAESAREAN SECTION [None]
  - HYPOCALCAEMIA [None]
  - JAUNDICE NEONATAL [None]
  - LETHARGY [None]
  - MATERNAL DRUGS AFFECTING FOETUS [None]
  - NEONATAL TACHYPNOEA [None]
  - PYREXIA [None]
  - SEPSIS NEONATAL [None]
